FAERS Safety Report 5083843-3 (Version None)
Quarter: 2006Q3

REPORT INFORMATION
  Report Type: 
  Country: None (occurrence: None)
  Receive Date: 20060818
  Receipt Date: 20060810
  Transmission Date: 20061208
  Serious: Yes (Death, Hospitalization)
  Sender: FDA-Public Use
  Company Number: FR-ABBOTT-06P-056-0340373-00

PATIENT
  Age: 78 Year
  Sex: Female

DRUGS (6)
  1. DEPAKENE [Suspect]
     Indication: EPILEPSY
     Route: 048
  2. CLOPIDOGREL BISULFATE [Suspect]
     Indication: CEREBROVASCULAR ACCIDENT
     Route: 048
  3. AMIODARONE HYDROCHLORIDE [Suspect]
     Indication: DRUG USE FOR UNKNOWN INDICATION
     Route: 048
  4. MADOPAR [Suspect]
     Indication: PARKINSON'S DISEASE
     Route: 048
  5. OMEPRAZOLE [Suspect]
     Indication: GASTRIC ULCER
     Route: 048
  6. EPOETIN BETA [Suspect]
     Indication: ANAEMIA
     Route: 058

REACTIONS (3)
  - CONDITION AGGRAVATED [None]
  - HYPOTHYROIDISM [None]
  - PSYCHOMOTOR SKILLS IMPAIRED [None]
